FAERS Safety Report 9012601 (Version 1)
Quarter: 2013Q1

REPORT INFORMATION
  Report Type: Report from Study
  Country: DE (occurrence: DE)
  Receive Date: 20130114
  Receipt Date: 20130114
  Transmission Date: 20140127
  Serious: Yes (Hospitalization)
  Sender: FDA-Public Use
  Company Number: DE-ABBOTT-13P-062-1034629-00

PATIENT
  Sex: Female

DRUGS (3)
  1. HUMIRA [Suspect]
     Indication: CROHN^S DISEASE
     Route: 058
     Dates: start: 20090901, end: 20120821
  2. HUMIRA [Suspect]
     Route: 058
     Dates: start: 20120821
  3. BUDENOFALK [Concomitant]
     Indication: CROHN^S DISEASE

REACTIONS (2)
  - Nephrolithiasis [Recovered/Resolved]
  - Gastrointestinal pain [Not Recovered/Not Resolved]
